FAERS Safety Report 5885843-X (Version None)
Quarter: 2008Q3

REPORT INFORMATION
  Report Type: 
  Country: None (occurrence: None)
  Receive Date: 20080917
  Receipt Date: 20080915
  Transmission Date: 20090109
  Serious: Yes (Hospitalization, Other)
  Sender: FDA-Public Use
  Company Number: DE-BRISTOL-MYERS SQUIBB COMPANY-14336317

PATIENT
  Age: 43 Year
  Sex: Female
  Weight: 66 kg

DRUGS (4)
  1. TAXOL [Suspect]
     Indication: BREAST CANCER
     Dosage: TAKEN ON 09-JUL-2008
     Route: 042
     Dates: start: 20080903, end: 20080903
  2. ENDOXAN [Suspect]
     Indication: BREAST CANCER
     Dosage: TAKEN FROM 18APR2008
     Route: 042
     Dates: start: 20080625, end: 20080625
  3. XELODA [Suspect]
     Indication: BREAST CANCER
     Dosage: TAKEN TILL 04SEP2008 TAKEN ONCE DAILY FOR 2 WEEKS STARTING EVERY 3 WEEKS
     Route: 048
     Dates: start: 20080709, end: 20080709
  4. EPIRUBICIN [Suspect]
     Indication: BREAST CANCER
     Dosage: TAKEN FROM 18APR2008
     Route: 042
     Dates: start: 20080625, end: 20080625

REACTIONS (3)
  - DIARRHOEA [None]
  - HYPOKALAEMIA [None]
  - WEIGHT DECREASED [None]
